FAERS Safety Report 12637393 (Version 1)
Quarter: 2016Q3

REPORT INFORMATION
  Report Type: Spontaneous
  Country: US (occurrence: US)
  Receive Date: 20160809
  Receipt Date: 20160809
  Transmission Date: 20161109
  Serious: No
  Sender: FDA-Public Use
  Company Number: US-BEH-2016060687

PATIENT
  Sex: Female
  Weight: 69 kg

DRUGS (17)
  1. PRIVIGEN [Suspect]
     Active Substance: HUMAN IMMUNOGLOBULIN G
     Indication: SELECTIVE IGG SUBCLASS DEFICIENCY
     Route: 042
     Dates: start: 20150121
  2. PRIVIGEN [Suspect]
     Active Substance: HUMAN IMMUNOGLOBULIN G
     Indication: STIFF PERSON SYNDROME
     Route: 042
     Dates: start: 20150121
  3. KEPPRA [Concomitant]
     Active Substance: LEVETIRACETAM
  4. MICROGESTIN [Concomitant]
     Active Substance: ETHINYL ESTRADIOL\NORETHINDRONE ACETATE
  5. PRIVIGEN [Suspect]
     Active Substance: HUMAN IMMUNOGLOBULIN G
     Indication: STIFF PERSON SYNDROME
     Route: 042
     Dates: start: 20150121
  6. DIPHENHYDRAMINE. [Concomitant]
     Active Substance: DIPHENHYDRAMINE
  7. NORMAL SALINE [Concomitant]
     Active Substance: SODIUM CHLORIDE
  8. ROPINIROLE. [Concomitant]
     Active Substance: ROPINIROLE
  9. EPIPEN [Concomitant]
     Active Substance: EPINEPHRINE
  10. CORTISONE [Concomitant]
     Active Substance: CORTISONE\HYDROCORTISONE
  11. IBUPROFEN. [Concomitant]
     Active Substance: IBUPROFEN
  12. SODIUM CHLORIDE. [Concomitant]
     Active Substance: SODIUM CHLORIDE
  13. TRAMADOL. [Concomitant]
     Active Substance: TRAMADOL
  14. ACETAMINOPHEN. [Concomitant]
     Active Substance: ACETAMINOPHEN
  15. SOLU-MEDROL [Concomitant]
     Active Substance: METHYLPREDNISOLONE SODIUM SUCCINATE
  16. DIAZEPAM. [Concomitant]
     Active Substance: DIAZEPAM
  17. BACLOFEN. [Concomitant]
     Active Substance: BACLOFEN

REACTIONS (2)
  - Headache [Unknown]
  - Flushing [Unknown]
